FAERS Safety Report 6509359-2 (Version None)
Quarter: 2009Q4

REPORT INFORMATION
  Report Type: 
  Country: None (occurrence: None)
  Receive Date: 20091218
  Receipt Date: 20091218
  Transmission Date: 20100525
  Serious: Yes (Life-Threatening, Hospitalization)
  Sender: FDA-Public Use
  Company Number: None

PATIENT
  Age: 72 Year
  Sex: Male
  Weight: 104 kg

DRUGS (9)
  1. FLUORESCEIN 500 MG/5 ML [Suspect]
     Indication: OPHTHALMOLOGICAL EXAMINATION
     Dosage: 500 MG ONE TIME IV BOLUS
     Route: 040
     Dates: start: 20090501, end: 20090501
  2. ALBUTEROL [Concomitant]
  3. ASPIRIN [Concomitant]
  4. AZMACORT [Concomitant]
  5. METFORMIN HCL [Concomitant]
  6. PLAVIX [Concomitant]
  7. PREDNISONE [Concomitant]
  8. SIMVASTATIN [Concomitant]
  9. SINGULAIR [Concomitant]

REACTIONS (7)
  - CHEST DISCOMFORT [None]
  - CYANOSIS [None]
  - DYSPNOEA [None]
  - ERYTHEMA [None]
  - FALL [None]
  - VENTRICULAR TACHYCARDIA [None]
  - WHEEZING [None]
